FAERS Safety Report 23377651 (Version 1)
Quarter: 2024Q1

REPORT INFORMATION
  Report Type: Spontaneous
  Country: US (occurrence: US)
  Receive Date: 20240108
  Receipt Date: 20240108
  Transmission Date: 20240410
  Serious: No
  Sender: FDA-Public Use
  Company Number: US-HALEON-USCH2023067863

PATIENT
  Age: 74 Year
  Sex: Female

DRUGS (1)
  1. FLONASE SENSIMIST ALLERGY RELIEF [Suspect]
     Active Substance: FLUTICASONE FUROATE
     Indication: Seasonal allergy
     Dosage: UNK
     Dates: start: 20230121, end: 20231227

REACTIONS (3)
  - Hypersensitivity [Unknown]
  - Swelling face [Unknown]
  - Erythema [Unknown]
